FAERS Safety Report 7440512-X (Version None)
Quarter: 2011Q2

REPORT INFORMATION
  Report Type: 
  Country: None (occurrence: None)
  Receive Date: 20110427
  Receipt Date: 20110425
  Transmission Date: 20111010
  Serious: Yes (Hospitalization)
  Sender: FDA-Public Use
  Company Number: A0776443A

PATIENT
  Age: 63 Year
  Sex: Male

DRUGS (1)
  1. AVANDIA [Suspect]
     Indication: DIABETES MELLITUS
     Dosage: 8MG PER DAY
     Route: 048
     Dates: start: 20000331, end: 20030202

REACTIONS (4)
  - FRACTURE [None]
  - HYPERTENSION [None]
  - MYOCARDIAL INFARCTION [None]
  - CATHETERISATION CARDIAC [None]
